FAERS Safety Report 15124267 (Version 1)
Quarter: 2018Q3

REPORT INFORMATION
  Report Type: Spontaneous
  Country: US (occurrence: US)
  Receive Date: 20180710
  Receipt Date: 20180710
  Transmission Date: 20181010
  Serious: No
  Sender: FDA-Public Use
  Company Number: US-CELGENEUS-USA-20180701510

PATIENT
  Sex: Female

DRUGS (2)
  1. OTEZLA [Suspect]
     Active Substance: APREMILAST
     Indication: PSORIATIC ARTHROPATHY
     Route: 048
     Dates: start: 2015, end: 201601
  2. SALSALATE. [Concomitant]
     Active Substance: SALSALATE
     Indication: PSORIATIC ARTHROPATHY
     Route: 065
     Dates: start: 201312, end: 201706

REACTIONS (1)
  - Treatment failure [Unknown]
